FAERS Safety Report 6625535-2 (Version None)
Quarter: 2010Q1

REPORT INFORMATION
  Report Type: 
  Country: None (occurrence: None)
  Receive Date: 20100310
  Receipt Date: 20100303
  Transmission Date: 20100710
  Serious: Yes (Disabling)
  Sender: FDA-Public Use
  Company Number: FR-B.I. PHARMACEUTICALS,INC./RIDGEFIELD-2010-BP-02740YA

PATIENT
  Sex: Male

DRUGS (4)
  1. OMIX L.P. [Suspect]
     Indication: BENIGN PROSTATIC HYPERPLASIA
     Route: 048
     Dates: start: 20050101
  2. HYPERIUM (RILMENIDINE) [Suspect]
     Indication: HYPERTENSION
     Route: 048
  3. CHONDROSULF (CHONDROITIN SULFATE SODIUM) [Suspect]
     Indication: OSTEOARTHRITIS
     Route: 048
  4. COAPROVEL (HYDROCHLOROTHIAZIDE, IRBESARTAN) [Concomitant]
     Indication: HYPERTENSION

REACTIONS (1)
  - SKIN LESION [None]
